FAERS Safety Report 8247882-3 (Version None)
Quarter: 2012Q1

REPORT INFORMATION
  Report Type: 
  Country: None (occurrence: None)
  Receive Date: 20120330
  Receipt Date: 20120327
  Transmission Date: 20120608
  Serious: Yes (Life-Threatening, Hospitalization, Other)
  Sender: FDA-Public Use
  Company Number: GB-MERCK-1203GBR00091

PATIENT
  Age: 78 Year
  Sex: Male

DRUGS (3)
  1. FLOXACILLIN [Concomitant]
     Indication: PNEUMONIA
     Route: 065
  2. ZOCOR [Suspect]
     Route: 048
  3. FUSIDIC ACID [Suspect]
     Indication: PNEUMONIA
     Route: 065

REACTIONS (5)
  - CHROMATURIA [None]
  - MOBILITY DECREASED [None]
  - BLOOD CREATINE PHOSPHOKINASE INCREASED [None]
  - MYOPATHY [None]
  - POTENTIATING DRUG INTERACTION [None]
